FAERS Safety Report 8329161-9 (Version None)
Quarter: 2012Q2

REPORT INFORMATION
  Report Type: 
  Country: None (occurrence: None)
  Receive Date: 20120430
  Receipt Date: 20120416
  Transmission Date: 20120825
  Serious: Yes (Other)
  Sender: FDA-Public Use
  Company Number: MC201200251

PATIENT

DRUGS (3)
  1. CLOPIDOGREL [Concomitant]
  2. ASPIRIN [Concomitant]
  3. ANGIOMAX [Suspect]
     Indication: CAROTID ARTERY STENT INSERTION
     Dosage: 0.75 MG/KG, BOLUS, INTRAVENOUS : 1.75 MG/KG, HR, INTRAVENOUS
     Route: 042

REACTIONS (4)
  - OFF LABEL USE [None]
  - HEADACHE [None]
  - HAEMORRHAGIC STROKE [None]
  - MUSCULAR WEAKNESS [None]
